FAERS Safety Report 20491028 (Version 1)
Quarter: 2022Q1

REPORT INFORMATION
  Report Type: Spontaneous
  Country: US (occurrence: None)
  Receive Date: 20220218
  Receipt Date: 20220218
  Transmission Date: 20220423
  Serious: Yes (Hospitalization)
  Sender: FDA-Public Use
  Company Number: None

PATIENT
  Age: 42 Year
  Sex: Male

DRUGS (2)
  1. BRAFTOVI [Suspect]
     Active Substance: ENCORAFENIB
     Indication: Rectal cancer
     Dosage: FREQUENCY : DAILY;?
     Route: 048
     Dates: start: 20220121, end: 20220218
  2. ERBITUX [Concomitant]
     Active Substance: CETUXIMAB

REACTIONS (9)
  - Illness [None]
  - Faeces discoloured [None]
  - Haemoptysis [None]
  - Epistaxis [None]
  - Weight decreased [None]
  - Mental fatigue [None]
  - Pruritus [None]
  - Pyrexia [None]
  - Hyperhidrosis [None]

NARRATIVE: CASE EVENT DATE: 20220122
